FAERS Safety Report 11243436 (Version 2)
Quarter: 2015Q3

REPORT INFORMATION
  Report Type: Spontaneous
  Country: NL (occurrence: NL)
  Receive Date: 20150707
  Receipt Date: 20150723
  Transmission Date: 20151125
  Serious: Yes (Life-Threatening)
  Sender: FDA-Public Use
  Company Number: NL-HOSPIRA-2924407

PATIENT
  Age: 57 Year
  Sex: Female

DRUGS (1)
  1. CEFTRIAXONE SODIUM. [Suspect]
     Active Substance: CEFTRIAXONE SODIUM
     Indication: NEUROBORRELIOSIS
     Dosage: DAILY FOR 14 DAYS
     Route: 042

REACTIONS (3)
  - Shock [Recovered/Resolved]
  - Multi-organ failure [Recovered/Resolved]
  - Haemolytic anaemia [Recovered/Resolved]
